FAERS Safety Report 18747261 (Version 2)
Quarter: 2021Q1

REPORT INFORMATION
  Report Type: Spontaneous
  Country: CA (occurrence: CA)
  Receive Date: 20210115
  Receipt Date: 20210310
  Transmission Date: 20210419
  Serious: Yes (Other)
  Sender: FDA-Public Use
  Company Number: CA-GLAXOSMITHKLINE-CA2021AMR008774

PATIENT
  Age: 67 Year
  Sex: Female

DRUGS (3)
  1. ZEJULA [Suspect]
     Active Substance: NIRAPARIB
     Indication: OVARIAN EPITHELIAL CANCER RECURRENT
     Dosage: 300 MG, QD IN THE MORNING AT 9.30 WITH FOOD
     Route: 048
     Dates: start: 20210107, end: 20210304
  2. ZEJULA [Suspect]
     Active Substance: NIRAPARIB
     Indication: FALLOPIAN TUBE CANCER
  3. ZEJULA [Suspect]
     Active Substance: NIRAPARIB
     Indication: MALIGNANT PERITONEAL NEOPLASM

REACTIONS (5)
  - Hyperchlorhydria [Unknown]
  - Syncope [Recovered/Resolved]
  - Vomiting [Unknown]
  - Product dose omission issue [Unknown]
  - Dizziness [Recovered/Resolved]

NARRATIVE: CASE EVENT DATE: 20210107
